FAERS Safety Report 12874129 (Version 1)
Quarter: 2016Q4

REPORT INFORMATION
  Report Type: Spontaneous
  Country: SG (occurrence: SG)
  Receive Date: 20161021
  Receipt Date: 20161021
  Transmission Date: 20170207
  Serious: Yes (Other)
  Sender: FDA-Public Use
  Company Number: SG-009507513-1610SGP009550

PATIENT
  Age: 84 Year
  Sex: Female

DRUGS (1)
  1. FOSAMAX [Suspect]
     Active Substance: ALENDRONATE SODIUM

REACTIONS (2)
  - Gingival pain [Unknown]
  - Headache [Unknown]

NARRATIVE: CASE EVENT DATE: 20160825
